FAERS Safety Report 5965281-1 (Version None)
Quarter: 2008Q4

REPORT INFORMATION
  Report Type: 
  Country: None (occurrence: None)
  Receive Date: 20081125
  Receipt Date: 20081006
  Transmission Date: 20090506
  Serious: No
  Sender: FDA-Public Use
  Company Number: US-AMGEN-KDL311937

PATIENT
  Sex: Female

DRUGS (9)
  1. ENBREL [Suspect]
     Indication: RHEUMATOID ARTHRITIS
     Route: 058
  2. GLIMEPIRIDE [Concomitant]
  3. SULFASALAZINE [Concomitant]
  4. HYDROXYCHLOROQUINE SULFATE [Concomitant]
  5. FOLIC ACID [Concomitant]
  6. LEVOTHYROXINE SODIUM [Concomitant]
  7. FAMOTIDINE [Concomitant]
  8. SUCRALFATE [Concomitant]
     Route: 048
  9. METHOTREXATE [Concomitant]

REACTIONS (1)
  - RHEUMATOID ARTHRITIS [None]
